FAERS Safety Report 8176704-4 (Version None)
Quarter: 2012Q1

REPORT INFORMATION
  Report Type: 
  Country: None (occurrence: None)
  Receive Date: 20120301
  Receipt Date: 20120217
  Transmission Date: 20120608
  Serious: Yes (Other)
  Sender: FDA-Public Use
  Company Number: FR-ELI_LILLY_AND_COMPANY-FR201202005026

PATIENT
  Sex: Female

DRUGS (3)
  1. CLONAZEPAM [Concomitant]
     Dosage: 50 DF, QD
     Dates: start: 20120125, end: 20120126
  2. ZYPREXA [Suspect]
     Dosage: 20 MG, QD
     Route: 048
     Dates: start: 20120125, end: 20120126
  3. ZYPREXA [Suspect]
     Dosage: 40 MG, UNK
     Dates: start: 20120126

REACTIONS (7)
  - ALTERED STATE OF CONSCIOUSNESS [None]
  - INCORRECT DOSE ADMINISTERED [None]
  - DRUG PRESCRIBING ERROR [None]
  - MIOSIS [None]
  - SOMNOLENCE [None]
  - HYPOTENSION [None]
  - ACCIDENTAL OVERDOSE [None]
